FAERS Safety Report 11523695 (Version 1)
Quarter: 2015Q3

REPORT INFORMATION
  Report Type: Spontaneous
  Country: US (occurrence: US)
  Receive Date: 20150903
  Receipt Date: 20150903
  Transmission Date: 20151125
  Serious: No
  Sender: FDA-Public Use
  Company Number: US-ELI_LILLY_AND_COMPANY-US201207005505

PATIENT
  Sex: Male

DRUGS (2)
  1. CYMBALTA [Suspect]
     Active Substance: DULOXETINE HYDROCHLORIDE
     Indication: DEPRESSION
     Dosage: UNK
     Route: 065
  2. CYMBALTA [Suspect]
     Active Substance: DULOXETINE HYDROCHLORIDE
     Dosage: 30 MG, QD

REACTIONS (15)
  - Dental caries [Unknown]
  - Chest pain [Unknown]
  - Stomatitis [Unknown]
  - Drug hypersensitivity [Unknown]
  - Fear of falling [Unknown]
  - Oral pain [Unknown]
  - Toothache [Unknown]
  - Back pain [Unknown]
  - Pain in extremity [Unknown]
  - Wound [Unknown]
  - Dry skin [Unknown]
  - Wound complication [Unknown]
  - Dizziness [Unknown]
  - Tooth fracture [Unknown]
  - Rash [Not Recovered/Not Resolved]
